FAERS Safety Report 5689867-7 (Version None)
Quarter: 2008Q1

REPORT INFORMATION
  Report Type: 
  Country: None (occurrence: None)
  Receive Date: 20080331
  Receipt Date: 20080331
  Transmission Date: 20080703
  Serious: No
  Sender: FDA-Public Use
  Company Number: None

PATIENT
  Sex: Male
  Weight: 78.9 kg

DRUGS (4)
  1. FLUOROURACIL [Suspect]
     Dosage: 21048 MG
     Dates: end: 20080311
  2. BEVACIZUMAB (RHUMAB VEGF) [Suspect]
     Dosage: 1170 MG
     Dates: end: 20080311
  3. LEUCOVORIN CALCIUM [Suspect]
     Dosage: 3000 MG
     Dates: end: 20080311
  4. ELOXATIN [Suspect]
     Dosage: 640 MG
     Dates: end: 20080311

REACTIONS (1)
  - PULMONARY EMBOLISM [None]
